FAERS Safety Report 14392534 (Version 1)
Quarter: 2018Q1

REPORT INFORMATION
  Report Type: Spontaneous
  Country: CN (occurrence: CN)
  Receive Date: 20180116
  Receipt Date: 20180116
  Transmission Date: 20180509
  Serious: Yes (Death)
  Sender: FDA-Public Use
  Company Number: CN-HQ SPECIALTY-CN-2018INT000005

PATIENT
  Age: 1 Year
  Sex: Female

DRUGS (4)
  1. BLEOMYCIN [Concomitant]
     Active Substance: BLEOMYCIN SULFATE
     Indication: OVARIAN GERM CELL ENDODERMAL SINUS TUMOUR STAGE II
     Dosage: 10 MG M^2 DAY 1 AND DAY 7
     Route: 065
  2. CARBOPLATIN. [Concomitant]
     Active Substance: CARBOPLATIN
     Indication: OVARIAN GERM CELL ENDODERMAL SINUS TUMOUR STAGE II
     Dosage: 100 MG/M^2 DAY 1 TO DAY 5, CYCLES 1 AND 2
     Route: 065
  3. VINCRISTINE [Concomitant]
     Active Substance: VINCRISTINE
     Indication: OVARIAN GERM CELL ENDODERMAL SINUS TUMOUR STAGE II
     Dosage: 105 MG M^2 DAY 1 AND DAY 7
     Route: 065
  4. CISPLATIN. [Suspect]
     Active Substance: CISPLATIN
     Indication: PRODUCT USED FOR UNKNOWN INDICATION
     Dosage: 500 MG/M2, UNK
     Route: 065

REACTIONS (3)
  - Accidental overdose [Fatal]
  - Renal failure [Fatal]
  - Cardiac arrest [Fatal]
